FAERS Safety Report 8806262 (Version 1)
Quarter: 2012Q4

REPORT INFORMATION
  Report Type: 
  Country: IT (occurrence: IT)
  Receive Date: 20120925
  Receipt Date: 20120925
  Transmission Date: 20130627
  Serious: Yes (Other)
  Sender: FDA-Public Use
  Company Number: PHHY2012IT082469

PATIENT
  Age: 89 Year
  Sex: Female

DRUGS (10)
  1. VALPRESSION [Suspect]
     Indication: HYPERTENSION
     Dosage: 3 DF (120mg), per day
     Route: 048
     Dates: start: 20120907, end: 20120909
  2. VALPRESSION [Suspect]
     Dosage: 1 DF,
     Route: 048
  3. MONOKET [Concomitant]
     Dosage: 2 DF, UNK
  4. LERCADIP [Concomitant]
  5. LASIX [Concomitant]
  6. POTASSIUM CHLORIDE [Concomitant]
  7. CARDURA                                 /IRE/ [Concomitant]
  8. TIKLID [Concomitant]
  9. LEXOTAN [Concomitant]
  10. MADOPAR [Concomitant]
     Indication: DEMENTIA

REACTIONS (3)
  - Bradyphrenia [Recovered/Resolved]
  - Hypotension [Recovered/Resolved]
  - Altered state of consciousness [Recovered/Resolved]
